FAERS Safety Report 8666733 (Version 3)
Quarter: 2012Q4

REPORT INFORMATION
  Report Type: 
  Country: DE (occurrence: DE)
  Receive Date: 20120716
  Receipt Date: 20120907
  Transmission Date: 20130627
  Serious: Yes (Hospitalization)
  Sender: FDA-Public Use
  Company Number: DE-ELI_LILLY_AND_COMPANY-DE201207001784

PATIENT
  Age: 79 Year
  Sex: Female
  Weight: 78 kg

DRUGS (3)
  1. EFIENT [Suspect]
     Dosage: 60 mg, qd
     Route: 048
     Dates: start: 20110123, end: 20110123
  2. EFIENT [Suspect]
     Dosage: 10 mg, qd
     Route: 048
     Dates: start: 20110124
  3. ASPIRIN [Concomitant]
     Dosage: 300-500 mg qd
     Route: 048

REACTIONS (2)
  - Infection [Recovered/Resolved]
  - Abdominal wall haematoma [Recovered/Resolved]
